FAERS Safety Report 5812747-0 (Version None)
Quarter: 2008Q3

REPORT INFORMATION
  Report Type: 
  Country: None (occurrence: None)
  Receive Date: 20080717
  Receipt Date: 20080709
  Transmission Date: 20090109
  Serious: Yes (Disabling, Other)
  Sender: FDA-Public Use
  Company Number: US-ALLERGAN-0808567US

PATIENT
  Sex: Female

DRUGS (2)
  1. BOTOX [Suspect]
     Indication: NECK PAIN
     Dosage: UNK, UNK
     Dates: start: 20071201, end: 20071201
  2. BOTOX [Suspect]
     Indication: MUSCULOSKELETAL PAIN

REACTIONS (3)
  - MUSCULAR WEAKNESS [None]
  - PAIN IN EXTREMITY [None]
  - POSTURE ABNORMAL [None]
